FAERS Safety Report 7177581-0 (Version None)
Quarter: 2010Q4

REPORT INFORMATION
  Report Type: 
  Country: None (occurrence: None)
  Receive Date: 20101220
  Receipt Date: 20101212
  Transmission Date: 20110411
  Serious: No
  Sender: FDA-Public Use
  Company Number: US-PFIZER INC-2009310426

PATIENT
  Age: 55 Year
  Sex: Male

DRUGS (4)
  1. VORICONAZOLE [Suspect]
     Indication: RESPIRATORY TRACT INFECTION
     Dosage: UNK
     Dates: start: 20091128
  2. RAPAMUNE [Suspect]
  3. PREDNISONE [Concomitant]
  4. MYCOPHENOLATE MOFETIL [Concomitant]

REACTIONS (1)
  - DRUG LEVEL INCREASED [None]
